FAERS Safety Report 5071061-4 (Version None)
Quarter: 2006Q3

REPORT INFORMATION
  Report Type: 
  Country: None (occurrence: None)
  Receive Date: 20060804
  Receipt Date: 20060118
  Transmission Date: 20061208
  Serious: Yes (Other)
  Sender: FDA-Public Use
  Company Number: US-GLAXOSMITHKLINE-A0589808A

PATIENT
  Age: 43 Year
  Sex: Female

DRUGS (1)
  1. NICORETTE [Suspect]
     Dosage: 4MG UNKNOWN

REACTIONS (1)
  - DRUG ABUSER [None]
